FAERS Safety Report 6119427-5 (Version None)
Quarter: 2009Q1

REPORT INFORMATION
  Report Type: 
  Country: None (occurrence: None)
  Receive Date: 20090316
  Receipt Date: 20090306
  Transmission Date: 20090719
  Serious: Yes (Hospitalization)
  Sender: FDA-Public Use
  Company Number: A0772849A

PATIENT
  Age: 51 Year
  Sex: Male
  Weight: 109.1 kg

DRUGS (6)
  1. AVANDIA [Suspect]
     Indication: DIABETES MELLITUS
     Dosage: 4MG TWICE PER DAY
     Route: 048
     Dates: start: 20060704, end: 20070910
  2. GLUCOPHAGE [Concomitant]
  3. METFORMIN HCL [Concomitant]
  4. LANTUS [Concomitant]
  5. GLUCOTROL [Concomitant]
  6. SYNTHROID [Concomitant]

REACTIONS (1)
  - MYOCARDIAL INFARCTION [None]
